FAERS Safety Report 9007571 (Version 1)
Quarter: 2013Q1

REPORT INFORMATION
  Report Type: Spontaneous
  Country: US (occurrence: US)
  Receive Date: 20130111
  Receipt Date: 20130111
  Transmission Date: 20140127
  Serious: Yes (Other)
  Sender: FDA-Public Use
  Company Number: US-009507513-0909USA03190

PATIENT
  Age: 61 Year
  Sex: Female
  Weight: 56.7 kg

DRUGS (8)
  1. SINGULAIR [Suspect]
     Indication: ASTHMA
     Dosage: 1 DF, QD
     Route: 048
     Dates: start: 20050901, end: 20081028
  2. ADVAIR [Concomitant]
     Dosage: 100/50
  3. ASMANEX [Concomitant]
  4. FOSAMAX [Concomitant]
     Route: 048
  5. FEXOFENADINE HYDROCHLORIDE [Concomitant]
  6. MAXAIR [Concomitant]
  7. NASACORT [Concomitant]
  8. ZYRTEC [Concomitant]

REACTIONS (10)
  - Groin pain [Unknown]
  - Allergic granulomatous angiitis [Unknown]
  - Arthralgia [Unknown]
  - Cough [Unknown]
  - Fatigue [Unknown]
  - Musculoskeletal pain [Unknown]
  - Night sweats [Unknown]
  - Pain in extremity [Unknown]
  - Pyrexia [Unknown]
  - Swelling [Unknown]
